FAERS Safety Report 9826614 (Version 1)
Quarter: 2014Q1

REPORT INFORMATION
  Report Type: Spontaneous
  Country: US (occurrence: US)
  Receive Date: 20140117
  Receipt Date: 20140117
  Transmission Date: 20141002
  Serious: No
  Sender: FDA-Public Use
  Company Number: US-BIOGENIDEC-2014BI001818

PATIENT
  Age: 41 Year
  Sex: Female

DRUGS (5)
  1. TECFIDERA [Suspect]
     Indication: PRODUCT USED FOR UNKNOWN INDICATION
     Dates: start: 201306
  2. TECFIDERA [Suspect]
     Indication: PRODUCT USED FOR UNKNOWN INDICATION
     Route: 048
     Dates: start: 20130705, end: 20130711
  3. TECFIDERA [Suspect]
     Indication: PRODUCT USED FOR UNKNOWN INDICATION
     Route: 048
     Dates: start: 20130712, end: 20140105
  4. TECFIDERA [Suspect]
     Indication: PRODUCT USED FOR UNKNOWN INDICATION
     Route: 048
     Dates: start: 20140106
  5. AVONEX [Concomitant]
     Indication: MULTIPLE SCLEROSIS
     Route: 030

REACTIONS (8)
  - Abdominal distension [Recovered/Resolved]
  - Discomfort [Not Recovered/Not Resolved]
  - Prescribed underdose [Unknown]
  - Abdominal pain upper [Recovered/Resolved]
  - Pruritus [Not Recovered/Not Resolved]
  - Rash pruritic [Not Recovered/Not Resolved]
  - Abdominal discomfort [Recovered/Resolved]
  - Flushing [Recovered/Resolved]
